FAERS Safety Report 15393197 (Version 2)
Quarter: 2019Q1

REPORT INFORMATION
  Report Type: Spontaneous
  Country: DE (occurrence: DE)
  Receive Date: 20180917
  Receipt Date: 20190123
  Transmission Date: 20190417
  Serious: Yes (Life-Threatening, Hospitalization, Other)
  Sender: FDA-Public Use
  Company Number: PHHY2018DE100424

PATIENT
  Age: 80 Year
  Sex: Female

DRUGS (9)
  1. LASIX [Suspect]
     Active Substance: FUROSEMIDE
     Indication: HYPERTENSION
     Dosage: 5 DF, QD ( 2-2-1)
     Route: 065
     Dates: start: 201807, end: 201810
  2. SPIRONOLACTON - 1 A PHARMA [Suspect]
     Active Substance: SPIRONOLACTONE
     Indication: HYPERTENSION
     Dosage: 50 OT, QD
     Route: 065
     Dates: start: 201807
  3. SPIRONOLACTON - 1 A PHARMA [Suspect]
     Active Substance: SPIRONOLACTONE
     Indication: CARDIAC FAILURE
  4. FENTANYL. [Concomitant]
     Active Substance: FENTANYL
     Indication: INTERVERTEBRAL DISC DISORDER
     Dosage: 50 UG, EVERY 3 DAYS
     Route: 065
     Dates: start: 201807
  5. LASIX [Suspect]
     Active Substance: FUROSEMIDE
     Indication: CARDIAC FAILURE
  6. ENTRESTO [Suspect]
     Active Substance: SACUBITRIL\VALSARTAN
     Indication: CARDIAC FAILURE CHRONIC
     Dosage: 2 DF, QD
     Route: 065
     Dates: start: 201807
  7. ENTRESTO [Suspect]
     Active Substance: SACUBITRIL\VALSARTAN
     Indication: HYPERTENSION
     Dosage: 1 DF, QD
     Route: 065
  8. ELIQUIS [Concomitant]
     Active Substance: APIXABAN
     Indication: CORONARY ARTERY DISEASE
     Dosage: 0.5 DF, BID
     Route: 065
     Dates: start: 201807
  9. PLAVIX [Concomitant]
     Active Substance: CLOPIDOGREL BISULFATE
     Indication: CORONARY ARTERY DISEASE
     Dosage: 1 DF, QD
     Route: 065
     Dates: start: 201807

REACTIONS (4)
  - Fall [Recovering/Resolving]
  - Hypotonia [Recovering/Resolving]
  - Hypotension [Unknown]
  - Inappropriate schedule of product administration [Unknown]

NARRATIVE: CASE EVENT DATE: 20180907
